FAERS Safety Report 16711618 (Version 1)
Quarter: 2019Q3

REPORT INFORMATION
  Report Type: Spontaneous
  Country: US (occurrence: US)
  Receive Date: 20190816
  Receipt Date: 20190816
  Transmission Date: 20191004
  Serious: No
  Sender: FDA-Public Use
  Company Number: US-SA-2019SA221519

PATIENT
  Age: 66 Year
  Sex: Female

DRUGS (3)
  1. LANTUS [Suspect]
     Active Substance: INSULIN GLARGINE
     Indication: TYPE 2 DIABETES MELLITUS
     Dosage: 20 U, BID
     Route: 065
     Dates: start: 201903
  2. METFORMIN [Concomitant]
     Active Substance: METFORMIN HYDROCHLORIDE
     Dosage: 500 MG, QD
  3. LANTUS [Suspect]
     Active Substance: INSULIN GLARGINE
     Dosage: 30 U, BID

REACTIONS (3)
  - Product container issue [Unknown]
  - Product dose omission [Unknown]
  - Inappropriate schedule of product administration [Unknown]
